FAERS Safety Report 8238132-2 (Version None)
Quarter: 2012Q1

REPORT INFORMATION
  Report Type: 
  Country: None (occurrence: None)
  Receive Date: 20120327
  Receipt Date: 20120319
  Transmission Date: 20120608
  Serious: Yes (Other)
  Sender: FDA-Public Use
  Company Number: US-BAYER-2011-041412

PATIENT
  Age: 42 Year
  Sex: Female
  Weight: 104 kg

DRUGS (7)
  1. RHINOCORT [Concomitant]
  2. KEFLEX [Concomitant]
     Indication: INFECTION
     Dosage: 500 MG, QID
     Dates: start: 20090817
  3. YAZ [Suspect]
     Indication: CONTRACEPTION
     Dosage: UNK
     Dates: start: 20090609, end: 20090817
  4. LEXAPRO [Concomitant]
     Indication: DEPRESSION
  5. YAZ [Suspect]
     Indication: PREMENSTRUAL SYNDROME
  6. LEXAPRO [Concomitant]
     Indication: ANXIETY
     Dosage: UNK
     Dates: start: 20060101
  7. ANTIBIOTICS [Concomitant]

REACTIONS (8)
  - DEEP VEIN THROMBOSIS [None]
  - THROMBOPHLEBITIS [None]
  - PAIN IN EXTREMITY [None]
  - ANHEDONIA [None]
  - OEDEMA PERIPHERAL [None]
  - EMOTIONAL DISTRESS [None]
  - PAIN [None]
  - ANXIETY [None]
